FAERS Safety Report 10400506 (Version 1)
Quarter: 2014Q3

REPORT INFORMATION
  Report Type: Spontaneous
  Country: US (occurrence: US)
  Receive Date: 20140821
  Receipt Date: 20140821
  Transmission Date: 20150326
  Serious: No
  Sender: FDA-Public Use
  Company Number: US-ASTRAZENECA-2013SE71281

PATIENT
  Age: 47 Year
  Sex: Male
  Weight: 90.7 kg

DRUGS (3)
  1. SYMBICORT [Suspect]
     Active Substance: BUDESONIDE\FORMOTEROL FUMARATE DIHYDRATE
     Indication: ASTHMA
     Dosage: 160 MCG, BID
     Route: 055
     Dates: start: 20130919
  2. SINGULAIR [Concomitant]
     Active Substance: MONTELUKAST SODIUM
     Indication: MULTIPLE ALLERGIES
  3. CLARITIN OTC [Concomitant]
     Indication: MULTIPLE ALLERGIES

REACTIONS (10)
  - Blood pressure increased [Unknown]
  - Anxiety [Unknown]
  - Hunger [Unknown]
  - Chest pain [Unknown]
  - Fatigue [Unknown]
  - Toothache [Unknown]
  - Sinus headache [Unknown]
  - Pollakiuria [Unknown]
  - Headache [Unknown]
  - Insomnia [Unknown]

NARRATIVE: CASE EVENT DATE: 201309
